FAERS Safety Report 8362783-8 (Version None)
Quarter: 2012Q2

REPORT INFORMATION
  Report Type: 
  Country: None (occurrence: None)
  Receive Date: 20120516
  Receipt Date: 20120510
  Transmission Date: 20120825
  Serious: Yes (Hospitalization, Other)
  Sender: FDA-Public Use
  Company Number: PHHY2012BR040735

PATIENT
  Sex: Female

DRUGS (2)
  1. FORMOTEROL FUMARATE [Suspect]
     Dosage: 1 DF, QD
  2. FORMOTEROL FUMARATE [Suspect]
     Indication: APNOEA
     Dosage: 2 DF, QD
     Dates: start: 20111201

REACTIONS (2)
  - PANCREAS INFECTION [None]
  - ABDOMINAL PAIN [None]
